FAERS Safety Report 15863337 (Version 2)
Quarter: 2019Q1

REPORT INFORMATION
  Report Type: Spontaneous
  Country: US (occurrence: US)
  Receive Date: 20190124
  Receipt Date: 20190305
  Transmission Date: 20190417
  Serious: No
  Sender: FDA-Public Use
  Company Number: US-BAUSCH-BL-2019-000903

PATIENT
  Sex: Female

DRUGS (2)
  1. JUBLIA [Suspect]
     Active Substance: EFINACONAZOLE
     Indication: ONYCHOMYCOSIS
     Route: 061
     Dates: start: 2017
  2. JUBLIA [Suspect]
     Active Substance: EFINACONAZOLE
     Dosage: NEW BOTTLE
     Route: 061

REACTIONS (4)
  - Intentional product use issue [Unknown]
  - Product quality issue [Unknown]
  - Erythema [Recovered/Resolved]
  - Product container issue [Unknown]

NARRATIVE: CASE EVENT DATE: 2018
